FAERS Safety Report 10291692 (Version 1)
Quarter: 2014Q3

REPORT INFORMATION
  Report Type: Spontaneous
  Country: US (occurrence: US)
  Receive Date: 20140710
  Receipt Date: 20140710
  Transmission Date: 20150326
  Serious: No
  Sender: FDA-Public Use
  Company Number: US-ROXANE LABORATORIES, INC.-2014-RO-01059RO

PATIENT
  Age: 74 Year
  Sex: Female

DRUGS (2)
  1. NASONEX [Concomitant]
     Active Substance: MOMETASONE FUROATE
     Indication: VIRAL INFECTION
     Route: 065
  2. FLUTICASONE [Suspect]
     Active Substance: FLUTICASONE\FLUTICASONE PROPIONATE
     Indication: VIRAL INFECTION
     Route: 055
     Dates: start: 201401, end: 201402

REACTIONS (1)
  - Nasal dryness [Recovered/Resolved]

NARRATIVE: CASE EVENT DATE: 201402
